FAERS Safety Report 23073237 (Version 2)
Quarter: 2024Q1

REPORT INFORMATION
  Report Type: Spontaneous
  Country: JP (occurrence: JP)
  Receive Date: 20231017
  Receipt Date: 20240221
  Transmission Date: 20240410
  Serious: Yes (Hospitalization, Other)
  Sender: FDA-Public Use
  Company Number: JP-GLAXOSMITHKLINE-JP2023JPN140192

PATIENT

DRUGS (14)
  1. DAPRODUSTAT [Suspect]
     Active Substance: DAPRODUSTAT
     Dosage: 2 MG, 1D
     Route: 048
     Dates: start: 202206
  2. DAPRODUSTAT [Suspect]
     Active Substance: DAPRODUSTAT
     Dosage: 4 MG, 1D
     Route: 048
     Dates: start: 20230921, end: 202310
  3. DAPRODUSTAT [Suspect]
     Active Substance: DAPRODUSTAT
     Dosage: UNK
     Route: 048
     Dates: start: 20231205
  4. FUROSEMIDE [Concomitant]
     Active Substance: FUROSEMIDE
     Dosage: 20 MG, 1D, TEMPRARILY INJECT
     Route: 048
  5. FUROSEMIDE [Concomitant]
     Active Substance: FUROSEMIDE
     Dosage: 10 MG
     Route: 042
     Dates: start: 20231009, end: 20231012
  6. SODIUM FERROUS CITRATE [Concomitant]
     Active Substance: SODIUM FERROUS CITRATE
     Dosage: 50 MG, BID
     Route: 048
  7. CARBAZOCHROME [Concomitant]
     Active Substance: CARBAZOCHROME
     Dosage: 30 MG, BID, DISCONTINUATION AFTER HOSPITALIZATION
     Route: 048
     Dates: end: 20230919
  8. TRANEXAMIC ACID [Concomitant]
     Active Substance: TRANEXAMIC ACID
     Dosage: 250 MG, BID, DISCONTINUATION AFTER HOSPITALIZATION
     Route: 048
     Dates: end: 20230919
  9. SPIRONOLACTONE [Concomitant]
     Active Substance: SPIRONOLACTONE
     Dosage: 25 MG, BID, DUE TO INCREASING POTASSIUM LEVELS
     Route: 048
     Dates: end: 20231019
  10. CALCIUM CHLORIDE\MALTOSE\POTASSIUM CHLORIDE\SODIUM CHLORIDE\SODIUM LAC [Concomitant]
     Active Substance: CALCIUM CHLORIDE\MALTOSE\POTASSIUM CHLORIDE\SODIUM CHLORIDE\SODIUM LACTATE
     Dosage: 500 ML, BID
     Route: 042
     Dates: start: 20230921, end: 20231005
  11. SODIUM CHLORIDE [Concomitant]
     Active Substance: SODIUM CHLORIDE
     Dosage: 500 ML, BID
     Route: 042
     Dates: start: 20230921, end: 20231003
  12. DEXTROSE [Concomitant]
     Active Substance: DEXTROSE\DEXTROSE MONOHYDRATE
     Dosage: 20 ML, BID
     Route: 042
     Dates: start: 20230921, end: 20231003
  13. KN NO.1 [Concomitant]
     Dosage: 500 ML, BID
     Route: 042
     Dates: start: 20230921, end: 20230928
  14. DOPAMINE HYDROCHLORIDE [Concomitant]
     Active Substance: DOPAMINE HYDROCHLORIDE
     Dosage: 200 ML, QOD
     Route: 042
     Dates: start: 20230919, end: 20231005

REACTIONS (12)
  - Cardiac failure [Recovering/Resolving]
  - Fibrin D dimer increased [Unknown]
  - Brain natriuretic peptide increased [Unknown]
  - Pleural effusion [Recovered/Resolved]
  - Fall [Unknown]
  - General physical health deterioration [Unknown]
  - Pyuria [Unknown]
  - Pyrexia [Unknown]
  - Insomnia [Unknown]
  - Hot flush [Unknown]
  - Oedema [Unknown]
  - Product use issue [Unknown]

NARRATIVE: CASE EVENT DATE: 20230915
